FAERS Safety Report 5153148-0 (Version None)
Quarter: 2006Q4

REPORT INFORMATION
  Report Type: 
  Country: None (occurrence: None)
  Receive Date: 20061117
  Receipt Date: 20061113
  Transmission Date: 20070319
  Serious: Yes (Other)
  Sender: FDA-Public Use
  Company Number: GB-GLAXOSMITHKLINE-B0446918A

PATIENT
  Sex: Male

DRUGS (2)
  1. COMBIVIR [Suspect]
     Indication: HIV INFECTION
     Route: 065
  2. VIRAMUNE [Suspect]
     Indication: HIV INFECTION
     Route: 065

REACTIONS (2)
  - DRUG RESISTANCE [None]
  - VIRAL MUTATION IDENTIFIED [None]
